FAERS Safety Report 17541550 (Version 1)
Quarter: 2020Q1

REPORT INFORMATION
  Report Type: Report from Study
  Country: BE (occurrence: BE)
  Receive Date: 20200313
  Receipt Date: 20200313
  Transmission Date: 20200409
  Serious: Yes (Life-Threatening, Hospitalization, Other)
  Sender: FDA-Public Use
  Company Number: BE-GLAXOSMITHKLINE-BE2020GSK025364

PATIENT
  Age: 71 Year
  Sex: Female
  Weight: 54 kg

DRUGS (13)
  1. CARBOPLATIN (NON-GSK COMPARATOR) [Suspect]
     Active Substance: CARBOPLATIN
     Indication: OVARIAN CANCER
     Dosage: 3 AUC, 3 WEEKLY
     Route: 042
     Dates: start: 20190703, end: 20191029
  2. DAFALGAN [Concomitant]
     Active Substance: ACETAMINOPHEN
     Indication: PLEURAL EFFUSION
     Dosage: 1 G
     Route: 048
     Dates: start: 20190629
  3. AUGMENTIN [Concomitant]
     Active Substance: AMOXICILLIN\CLAVULANATE POTASSIUM
     Dosage: 875 MG, TID
     Dates: start: 20200214
  4. NIRAPARIB [Suspect]
     Active Substance: NIRAPARIB
     Dosage: 100 MG, QD
     Dates: start: 20200227
  5. AMOXICLAV [Concomitant]
     Active Substance: AMOXICILLIN\CLAVULANATE POTASSIUM
     Dosage: 0.5 G, BID
     Dates: start: 20200206, end: 20200214
  6. DEXA RHINOSPRAY [Concomitant]
     Active Substance: DEXAMETHASONE ISONICOTINATE\TRAMAZOLINE HYDROCHLORIDE
     Indication: COUGH
     Dosage: UNK
     Dates: start: 20200117
  7. NIRAPARIB [Suspect]
     Active Substance: NIRAPARIB
     Indication: OVARIAN CANCER
     Dosage: 200 MG, QD
     Route: 048
     Dates: start: 20200117, end: 20200206
  8. GEMCITABINE (NON-GSK COMPARATOR) [Suspect]
     Active Substance: GEMCITABINE
     Indication: OVARIAN CANCER
     Dosage: 1000 MG/M2, DAY 1 AND DAY 8 EVERY 3 WEEKS
     Route: 042
     Dates: start: 20190703, end: 20191029
  9. COVERSYL PLUS [Concomitant]
     Active Substance: INDAPAMIDE\PERINDOPRIL
     Indication: HYPERTENSION
     Dosage: UNK
     Route: 048
     Dates: start: 20191228
  10. LAXIS (DEXLANSOPRAZOLE) [Concomitant]
     Indication: PLEURAL EFFUSION
     Dosage: 40 MG
     Route: 048
     Dates: start: 20191220
  11. PANTOMED (DEXPANTHENOL) [Concomitant]
     Active Substance: DEXPANTHENOL
     Indication: PROPHYLAXIS
     Dosage: 20 MG
     Route: 048
     Dates: start: 20191209
  12. TOULARYNX [Concomitant]
     Indication: COUGH
     Dosage: UNK
     Route: 048
     Dates: start: 20191227
  13. NASONEX [Concomitant]
     Active Substance: MOMETASONE FUROATE
     Indication: COUGH
     Dosage: UNK
     Dates: start: 20200117

REACTIONS (1)
  - Thrombocytopenia [Recovered/Resolved]

NARRATIVE: CASE EVENT DATE: 20200210
